FAERS Safety Report 7897084-5 (Version None)
Quarter: 2011Q4

REPORT INFORMATION
  Report Type: 
  Country: None (occurrence: None)
  Receive Date: 20111107
  Receipt Date: 20111027
  Transmission Date: 20120403
  Serious: No
  Sender: FDA-Public Use
  Company Number: US-JNJFOC-20111012947

PATIENT
  Sex: Female
  Weight: 145.15 kg

DRUGS (15)
  1. METFORMIN HCL [Concomitant]
     Indication: DIABETES MELLITUS
     Route: 048
     Dates: start: 20060101
  2. SYNTHROID [Concomitant]
     Indication: HYPOTHYROIDISM
     Route: 048
     Dates: start: 20090101
  3. METOPROLOL TARTRATE [Concomitant]
     Indication: HYPERTENSION
     Route: 048
     Dates: start: 20080101
  4. DURAGESIC-100 [Suspect]
     Indication: PAIN
     Route: 062
     Dates: start: 20090101
  5. NASONEX [Concomitant]
     Indication: HYPERSENSITIVITY
     Route: 065
     Dates: start: 20080101
  6. GEODON [Concomitant]
     Indication: BIPOLAR DISORDER
     Route: 048
     Dates: start: 20090101
  7. GEODON [Concomitant]
     Route: 048
     Dates: start: 20090101
  8. POTASSIUM [Concomitant]
     Indication: NUTRITIONAL SUPPORT
     Route: 048
     Dates: start: 20080101
  9. LEXAPRO [Concomitant]
     Indication: BIPOLAR DISORDER
     Route: 048
     Dates: start: 20080101
  10. VENTOLIN [Concomitant]
     Indication: BRONCHITIS CHRONIC
     Route: 065
  11. UNKNOWN MEDICATION [Concomitant]
     Indication: PAIN
     Route: 048
     Dates: start: 20090101
  12. PHENERGAN HCL [Concomitant]
     Indication: NAUSEA
     Route: 048
     Dates: start: 20080101
  13. COUMADIN [Concomitant]
     Indication: ANTICOAGULANT THERAPY
     Route: 048
     Dates: start: 20080101
  14. VENTOLIN [Concomitant]
     Indication: CHRONIC OBSTRUCTIVE PULMONARY DISEASE
     Route: 065
  15. LASIX [Concomitant]
     Indication: PRODUCT USED FOR UNKNOWN INDICATION
     Route: 048
     Dates: start: 20080101

REACTIONS (5)
  - PANIC ATTACK [None]
  - PRODUCT QUALITY ISSUE [None]
  - SLEEP DISORDER [None]
  - DRUG DOSE OMISSION [None]
  - ANXIETY [None]
